FAERS Safety Report 23967925 (Version 10)
Quarter: 2025Q3

REPORT INFORMATION
  Report Type: Report from Study
  Country: JP (occurrence: JP)
  Receive Date: 20240612
  Receipt Date: 20250709
  Transmission Date: 20251021
  Serious: Yes (Hospitalization, Disabling)
  Sender: EISAI
  Company Number: JP-Eisai-202300500_LEN-EC_P_1

PATIENT
  Age: 64 Year
  Sex: Female
  Weight: 51 kg

DRUGS (8)
  1. LENVIMA [Suspect]
     Active Substance: LENVATINIB
     Indication: Endometrial cancer recurrent
     Dates: start: 20221011, end: 20221027
  2. LENVIMA [Suspect]
     Active Substance: LENVATINIB
     Dates: start: 20221101, end: 20221102
  3. LENVIMA [Suspect]
     Active Substance: LENVATINIB
     Dates: start: 20221115, end: 20230120
  4. LENVIMA [Suspect]
     Active Substance: LENVATINIB
     Dates: start: 20230314, end: 20230323
  5. LENVIMA [Suspect]
     Active Substance: LENVATINIB
     Dates: start: 20230328, end: 20230404
  6. KEYTRUDA [Suspect]
     Active Substance: PEMBROLIZUMAB
     Indication: Endometrial cancer recurrent
     Dates: start: 20221011, end: 20230314
  7. KEYTRUDA [Suspect]
     Active Substance: PEMBROLIZUMAB
     Dates: start: 20230516, end: 20240220
  8. MYSER [Concomitant]
     Indication: Rash
     Dates: start: 20221027

REACTIONS (3)
  - Altered state of consciousness [Recovered/Resolved]
  - Hyponatraemia [Recovered/Resolved]
  - Adrenal insufficiency [Recovered/Resolved with Sequelae]

NARRATIVE: CASE EVENT DATE: 20230407
